FAERS Safety Report 4547609-2 (Version None)
Quarter: 2004Q4

REPORT INFORMATION
  Report Type: 
  Country: None (occurrence: None)
  Receive Date: 20041227
  Receipt Date: 20041110
  Transmission Date: 20050328
  Serious: No
  Sender: FDA-Public Use
  Company Number: 04P-163-0280240-00

PATIENT
  Age: 57 Year
  Sex: Female
  Weight: 122.7 kg

DRUGS (13)
  1. HUMIRA [Suspect]
     Indication: RHEUMATOID ARTHRITIS
     Dosage: SEE IMAGE
     Route: 058
     Dates: start: 20031101, end: 20040201
  2. HUMIRA [Suspect]
     Indication: RHEUMATOID ARTHRITIS
     Dosage: SEE IMAGE
     Route: 058
     Dates: start: 20040201, end: 20040401
  3. HUMIRA [Suspect]
     Indication: RHEUMATOID ARTHRITIS
     Dosage: SEE IMAGE
     Route: 058
     Dates: start: 20040701, end: 20040901
  4. LEVOTHYROXINE SODIUM [Concomitant]
  5. UNARETIC [Concomitant]
  6. AMLODIPINE BESYLATE [Concomitant]
  7. FUROSEMIDE [Concomitant]
  8. METHADONE HCL [Concomitant]
  9. DIAZEPAM [Concomitant]
  10. PROCHLORPERAZINE EDISYLATE [Concomitant]
  11. BUCINDOLOL HYDROCHLORIDE [Concomitant]
  12. IBUPROFEN [Concomitant]
  13. CLARINEX [Concomitant]

REACTIONS (2)
  - SKIN ULCER [None]
  - STAPHYLOCOCCAL INFECTION [None]
